FAERS Safety Report 13467403 (Version 1)
Quarter: 2017Q2

REPORT INFORMATION
  Report Type: Spontaneous
  Country: US (occurrence: US)
  Receive Date: 20170421
  Receipt Date: 20170421
  Transmission Date: 20170830
  Serious: Yes (Other)
  Sender: FDA-Public Use
  Company Number: None

PATIENT
  Age: 36 Year
  Sex: Female
  Weight: 84.8 kg

DRUGS (7)
  1. DURAMORPH [Concomitant]
     Active Substance: MORPHINE SULFATE
  2. ACETAMINOPHEN. [Concomitant]
     Active Substance: ACETAMINOPHEN
  3. LACTATED RINGERS [Concomitant]
     Active Substance: CALCIUM CHLORIDE\POTASSIUM CHLORIDE\SODIUM CHLORIDE\SODIUM LACTATE
  4. PRENATAL VITAMINS [Concomitant]
     Active Substance: VITAMINS
  5. ONDANSETRON [Concomitant]
     Active Substance: ONDANSETRON
  6. METOCLOPRAMIDE INJECTION [Suspect]
     Active Substance: METOCLOPRAMIDE
     Indication: NAUSEA
     Dosage: ?          OTHER FREQUENCY:ONE DOSE ONLY;?
     Route: 040
     Dates: start: 20170420, end: 20170420
  7. CEFAZOLIN [Concomitant]
     Active Substance: CEFAZOLIN

REACTIONS (5)
  - Abnormal behaviour [None]
  - Incoherent [None]
  - Neck pain [None]
  - Aggression [None]
  - Myalgia [None]

NARRATIVE: CASE EVENT DATE: 20170420
